FAERS Safety Report 19642148 (Version 1)
Quarter: 2021Q3

REPORT INFORMATION
  Report Type: Spontaneous
  Country: US (occurrence: US)
  Receive Date: 20210731
  Receipt Date: 20210731
  Transmission Date: 20211014
  Serious: No
  Sender: FDA-Public Use
  Company Number: US-LUPIN PHARMACEUTICALS INC.-2021-13118

PATIENT
  Age: 22 Month
  Sex: Female

DRUGS (17)
  1. HYDROXYCHLOROQUINE [Suspect]
     Active Substance: HYDROXYCHLOROQUINE
     Indication: COVID-19
     Dosage: UNK
     Route: 065
  2. IMMUNOGLOBULINS [IMMUNOGLOBULIN HUMAN NORMAL] [Suspect]
     Active Substance: HUMAN IMMUNOGLOBULIN G
     Indication: COVID-19
  3. NOREPINEPHRINE. [Suspect]
     Active Substance: NOREPINEPHRINE
     Indication: COVID-19
     Dosage: UNK
     Route: 042
  4. METHYLPREDNISOLONE. [Suspect]
     Active Substance: METHYLPREDNISOLONE
     Indication: COVID-19
     Dosage: UNK
     Route: 065
  5. ANAKINRA [Suspect]
     Active Substance: ANAKINRA
     Indication: COVID-19
  6. CEFEPIME [Suspect]
     Active Substance: CEFEPIME HYDROCHLORIDE
     Indication: COVID-19
  7. ANAKINRA [Suspect]
     Active Substance: ANAKINRA
     Indication: EVIDENCE BASED TREATMENT
     Dosage: UNK, INITIATED EMPIRICALLY ON HOSPITAL DAY 7 BASED ON CLINICAL FEATURES OF CYTOKINE STORM
     Route: 065
  8. CEFEPIME [Suspect]
     Active Substance: CEFEPIME HYDROCHLORIDE
     Indication: ENTEROCOCCAL INFECTION
     Dosage: UNK
     Route: 065
  9. NITRIC OXIDE. [Concomitant]
     Active Substance: NITRIC OXIDE
     Indication: DRUG THERAPY
     Dosage: UNK
     Route: 042
  10. VANCOMYCIN [Suspect]
     Active Substance: VANCOMYCIN
     Indication: PSEUDOMONAS INFECTION
     Dosage: UNK
     Route: 065
  11. VANCOMYCIN [Suspect]
     Active Substance: VANCOMYCIN
     Indication: ENTEROCOCCAL INFECTION
  12. VANCOMYCIN [Suspect]
     Active Substance: VANCOMYCIN
     Indication: COVID-19
  13. CEFEPIME [Suspect]
     Active Substance: CEFEPIME HYDROCHLORIDE
     Indication: PSEUDOMONAS INFECTION
  14. REMDESIVIR. [Suspect]
     Active Substance: REMDESIVIR
     Indication: COVID-19
     Dosage: UNK
     Route: 065
  15. EPINEPHRINE. [Suspect]
     Active Substance: EPINEPHRINE
     Indication: COVID-19
     Dosage: UNK
     Route: 042
  16. IMMUNOGLOBULINS [IMMUNOGLOBULIN HUMAN NORMAL] [Suspect]
     Active Substance: HUMAN IMMUNOGLOBULIN G
     Indication: COMBINED IMMUNODEFICIENCY
     Dosage: UNK, 1 DOSE WAS ADMINISTERED
     Route: 042
  17. HYDROCORTISONE. [Suspect]
     Active Substance: HYDROCORTISONE
     Indication: COVID-19
     Dosage: UNK, STRESS?DOSE
     Route: 065

REACTIONS (1)
  - Off label use [Unknown]
